FAERS Safety Report 5693652-X (Version None)
Quarter: 2008Q2

REPORT INFORMATION
  Report Type: 
  Country: None (occurrence: None)
  Receive Date: 20080403
  Receipt Date: 20080401
  Transmission Date: 20081010
  Serious: Yes (Hospitalization)
  Sender: FDA-Public Use
  Company Number: IT-BAYER-200815541GPV

PATIENT
  Age: 33 Year
  Sex: Male

DRUGS (1)
  1. ASPIRIN [Suspect]
     Indication: MALAISE
     Route: 048
     Dates: start: 20080305, end: 20080307

REACTIONS (3)
  - ANAEMIA [None]
  - GASTRITIS EROSIVE [None]
  - MELAENA [None]
